FAERS Safety Report 15357936 (Version 5)
Quarter: 2021Q2

REPORT INFORMATION
  Report Type: Spontaneous
  Country: US (occurrence: US)
  Receive Date: 20180906
  Receipt Date: 20210525
  Transmission Date: 20210716
  Serious: Yes (Other)
  Sender: FDA-Public Use
  Company Number: US-SA-2018SA246270

PATIENT
  Age: 44 Year
  Sex: Female

DRUGS (5)
  1. FLUOXETINE [Suspect]
     Active Substance: FLUOXETINE HYDROCHLORIDE
     Indication: DEPRESSION
     Dosage: UNK
  2. AUBAGIO [Suspect]
     Active Substance: TERIFLUNOMIDE
     Indication: MULTIPLE SCLEROSIS
     Dosage: 14 MG, QD
     Route: 048
     Dates: start: 20180611
  3. FLUOXETINE [Suspect]
     Active Substance: FLUOXETINE HYDROCHLORIDE
     Dosage: 40 MG
     Route: 048
     Dates: start: 202101
  4. AUBAGIO [Suspect]
     Active Substance: TERIFLUNOMIDE
     Indication: DEPRESSION
     Dosage: 10 MG, BID
     Route: 048
     Dates: start: 2018
  5. AMPYRA [Suspect]
     Active Substance: DALFAMPRIDINE
     Indication: GAIT DISTURBANCE
     Dosage: UNK, QD
     Route: 048
     Dates: start: 2015

REACTIONS (7)
  - Tooth injury [Unknown]
  - Memory impairment [Unknown]
  - Product use issue [Unknown]
  - Product use in unapproved indication [Unknown]
  - Multiple sclerosis [Unknown]
  - Dental caries [Unknown]
  - Night sweats [Unknown]

NARRATIVE: CASE EVENT DATE: 2018
